FAERS Safety Report 20110697 (Version 1)
Quarter: 2021Q4

REPORT INFORMATION
  Report Type: Spontaneous
  Country: CA (occurrence: CA)
  Receive Date: 20211124
  Receipt Date: 20211124
  Transmission Date: 20220303
  Serious: Yes (Disabling, Other)
  Sender: FDA-Public Use
  Company Number: CA-SEAGEN-2021SGN06000

PATIENT
  Age: 67 Year
  Sex: Male
  Weight: 80 kg

DRUGS (13)
  1. ADCETRIS [Suspect]
     Active Substance: BRENTUXIMAB VEDOTIN
     Indication: Cutaneous T-cell lymphoma
     Dosage: 1.8 MG/KG, Q3WEEKS, 21 DAYS THERAPY DURATION
     Route: 042
  2. BETAMETHASONE [Concomitant]
     Active Substance: BETAMETHASONE
  3. CETIRIZINE [Concomitant]
     Active Substance: CETIRIZINE HYDROCHLORIDE
  4. CAMPHOR SOLUTION [Concomitant]
  5. MENTHOL [Concomitant]
     Active Substance: MENTHOL
  6. HYDROCORTISONE 1% IN ABSORBASE [Concomitant]
     Active Substance: HYDROCORTISONE
  7. DESOXIMETASONE [Concomitant]
     Active Substance: DESOXIMETASONE
  8. HYDROXYZINE [Concomitant]
     Active Substance: HYDROXYZINE HYDROCHLORIDE
  9. FERROUS SULFATE ANHYDROUS [Concomitant]
     Active Substance: FERROUS SULFATE ANHYDROUS
  10. ISOTRETINOIN [Concomitant]
     Active Substance: ISOTRETINOIN
  11. POLYETHYLENE GLYCOLS [Concomitant]
     Active Substance: POLYETHYLENE GLYCOLS
  12. TARO CIPROFLOXACIN [Concomitant]
  13. DEXAMETHASONE [Concomitant]
     Active Substance: DEXAMETHASONE

REACTIONS (2)
  - Drug reaction with eosinophilia and systemic symptoms [Unknown]
  - Pancreatitis acute [Unknown]
